FAERS Safety Report 22166824 (Version 2)
Quarter: 2023Q2

REPORT INFORMATION
  Report Type: Spontaneous
  Country: UZ (occurrence: UZ)
  Receive Date: 20230403
  Receipt Date: 20230414
  Transmission Date: 20230721
  Serious: Yes (Hospitalization, Other)
  Sender: FDA-Public Use
  Company Number: UZ-MYLANLABS-2023M1033525

PATIENT
  Age: 48 Year
  Sex: Male
  Weight: 74 kg

DRUGS (8)
  1. PRETOMANID [Suspect]
     Active Substance: PRETOMANID
     Indication: Pulmonary tuberculosis
     Dosage: UNK (200)
     Route: 048
     Dates: start: 20221229, end: 20230307
  2. MOXIFLOXACIN [Suspect]
     Active Substance: MOXIFLOXACIN
     Indication: Pulmonary tuberculosis
     Dosage: UNK (400)
     Route: 048
     Dates: start: 20221221, end: 20230307
  3. LINEZOLID [Suspect]
     Active Substance: LINEZOLID
     Indication: Pulmonary tuberculosis
     Dosage: UNK (600)
     Route: 048
     Dates: start: 20221223, end: 20230307
  4. CLOFAZIMINE [Suspect]
     Active Substance: CLOFAZIMINE
     Indication: Pulmonary tuberculosis
     Dosage: UNK (100)
     Route: 048
     Dates: start: 20221221, end: 20221228
  5. BEDAQUILINE [Suspect]
     Active Substance: BEDAQUILINE
     Indication: Pulmonary tuberculosis
     Dosage: 1 DOSAGE FORM, QD (400 X1 TIME DAILY)
     Route: 048
     Dates: start: 20221222, end: 20230104
  6. BEDAQUILINE [Suspect]
     Active Substance: BEDAQUILINE
     Dosage: 1 DOSAGE FORM, 3XW (200 X3 TIMES WEEKLY)
     Route: 048
     Dates: start: 20230105, end: 20230307
  7. METFORMIN [Suspect]
     Active Substance: METFORMIN HYDROCHLORIDE
     Indication: Pulmonary tuberculosis
     Dosage: UNK (850 BID, BEFORE ADMISSION)
     Route: 048
  8. GLYBURIDE [Suspect]
     Active Substance: GLYBURIDE
     Indication: Pulmonary tuberculosis
     Dosage: 2.5 MILLIGRAM, QD, BEFORE ADMISSION
     Route: 048

REACTIONS (2)
  - Hepatitis C [Recovered/Resolved]
  - Transaminases increased [Recovered/Resolved]

NARRATIVE: CASE EVENT DATE: 20230222
